FAERS Safety Report 19076189 (Version 1)
Quarter: 2021Q1

REPORT INFORMATION
  Report Type: Report from Study
  Country: IR (occurrence: IR)
  Receive Date: 20210331
  Receipt Date: 20210331
  Transmission Date: 20210420
  Serious: Yes (Other)
  Sender: FDA-Public Use
  Company Number: IR-SUN PHARMACEUTICAL INDUSTRIES LTD-2021RR-288373

PATIENT
  Age: 1 Year
  Sex: Female

DRUGS (6)
  1. MELPHALAN. [Suspect]
     Active Substance: MELPHALAN
     Indication: ALLOGENIC STEM CELL TRANSPLANTATION
     Dosage: 70 MILLIGRAM/SQ. METER, DAYS 7 AND 6 BEFORE TRANSPLANTATION
     Route: 065
  2. CICLOSPORIN [Suspect]
     Active Substance: CYCLOSPORINE
     Indication: ALLOGENIC STEM CELL TRANSPLANTATION
     Dosage: UNK, ON DAY 4 BEFORE TRANSPLANTATION
     Route: 065
  3. FLUDARABINE [Suspect]
     Active Substance: FLUDARABINE PHOSPHATE
     Indication: ALLOGENIC STEM CELL TRANSPLANTATION
     Dosage: 30 MILLIGRAM/SQ. METER, DAYS 5 TO 1 BEFORE TRANSPLANTATION
     Route: 065
  4. ITRACONAZOLE. [Suspect]
     Active Substance: ITRACONAZOLE
     Indication: INFECTION PROPHYLAXIS
     Dosage: UNK
     Route: 065
  5. ANTITHYMOCYTE GLOBULIN [Suspect]
     Active Substance: THYMOCYTE IMMUNE GLOBULIN NOS
     Indication: ALLOGENIC STEM CELL TRANSPLANTATION
     Dosage: 2.5 MILLIGRAM/KILOGRAM, DAYS 5 TO 2 BEFORE TRANSPLANTATION
     Route: 065
  6. SULPHAMETHOXAZOLE/TRIMETHOPRIM [Suspect]
     Active Substance: SULFAMETHOXAZOLE\TRIMETHOPRIM
     Indication: INFECTION PROPHYLAXIS
     Dosage: UNK
     Route: 065

REACTIONS (2)
  - Thrombocytopenia [Unknown]
  - Neutropenia [Unknown]
